FAERS Safety Report 17578344 (Version 1)
Quarter: 2020Q1

REPORT INFORMATION
  Report Type: Spontaneous
  Country: FR (occurrence: FR)
  Receive Date: 20200324
  Receipt Date: 20200324
  Transmission Date: 20200409
  Serious: Yes (Other)
  Sender: FDA-Public Use
  Company Number: FR-MYLANLABS-2020M1031136

PATIENT
  Age: 61 Year
  Sex: Male
  Weight: 57.5 kg

DRUGS (12)
  1. BELUSTINE [Suspect]
     Active Substance: LOMUSTINE
     Indication: ACUTE MYELOID LEUKAEMIA
     Dosage: 320 MILLIGRAM, TOTAL
     Route: 048
     Dates: start: 20191129, end: 20191129
  2. ZOPHREN                            /00955301/ [Suspect]
     Active Substance: ONDANSETRON
     Indication: PROPHYLAXIS OF NAUSEA AND VOMITING
     Dosage: 8 MILLIGRAM, QD
     Route: 042
     Dates: start: 20191129, end: 20191208
  3. CEFTRIAXONE. [Suspect]
     Active Substance: CEFTRIAXONE
     Indication: FEBRILE NEUTROPENIA
     Dosage: 2 GRAM, QD
     Route: 042
     Dates: start: 20191206, end: 20191209
  4. METHOTREXATE. [Suspect]
     Active Substance: METHOTREXATE
     Indication: ACUTE MYELOID LEUKAEMIA
     Dosage: 15 MILLIGRAM, TOTAL
     Route: 042
     Dates: start: 20191128, end: 20191128
  5. METHYLPREDNISOLONE. [Suspect]
     Active Substance: METHYLPREDNISOLONE
     Indication: PRODUCT USED FOR UNKNOWN INDICATION
     Dosage: 40 MILLIGRAM, QD
     Route: 037
     Dates: start: 20191128, end: 20191128
  6. DEXAMETHASONE. [Suspect]
     Active Substance: DEXAMETHASONE
     Indication: ACUTE MYELOID LEUKAEMIA
     Dosage: 20 MILLIGRAM, QD
     Route: 048
     Dates: start: 20191129, end: 20191201
  7. ACIDE FUSIDIQUE [Suspect]
     Active Substance: FUSIDIC ACID
     Indication: FOLLICULITIS
     Dosage: 2 DOSAGE FORM, QD
     Route: 003
     Dates: start: 20191206, end: 20191208
  8. VALACICLOVIR [Suspect]
     Active Substance: VALACYCLOVIR HYDROCHLORIDE
     Indication: INFECTION
     Dosage: 1000 MILLIGRAM, QD
     Route: 048
     Dates: start: 20191130, end: 20191209
  9. AMIKACIN. [Suspect]
     Active Substance: AMIKACIN
     Indication: INFECTION
     Dosage: 750 MILLIGRAM, QD
     Route: 042
     Dates: start: 20191207, end: 20191211
  10. FILGRASTIM [Suspect]
     Active Substance: FILGRASTIM
     Indication: PROPHYLAXIS
     Dosage: 30 MEGA-INTERNATIONAL UNIT, QD
     Route: 058
     Dates: start: 20191206, end: 20191209
  11. CYTARABINE. [Suspect]
     Active Substance: CYTARABINE
     Indication: ACUTE MYELOID LEUKAEMIA
     Dosage: 170 MILLIGRAM, QD
     Route: 042
     Dates: start: 20191128, end: 20191205
  12. IDARUBICIN MYLAN 1 MG/ML, SOLUTION FOR INFUSION [Suspect]
     Active Substance: IDARUBICIN
     Indication: ACUTE MYELOID LEUKAEMIA
     Dosage: 13.6 MILLIGRAM, QD
     Route: 042
     Dates: start: 20191129, end: 20191203

REACTIONS (1)
  - Toxic skin eruption [Recovered/Resolved]

NARRATIVE: CASE EVENT DATE: 20191207
